FAERS Safety Report 19400011 (Version 1)
Quarter: 2021Q2

REPORT INFORMATION
  Report Type: Spontaneous
  Country: US (occurrence: US)
  Receive Date: 20210610
  Receipt Date: 20210610
  Transmission Date: 20210717
  Serious: Yes (Other)
  Sender: FDA-Public Use
  Company Number: US-SA-2021SA192513

PATIENT
  Age: 85 Year
  Sex: Male

DRUGS (1)
  1. ZANTAC 150 MAXIMUM STRENGTH [Suspect]
     Active Substance: RANITIDINE HYDROCHLORIDE
     Indication: DYSPEPSIA
     Dosage: 150 MG

REACTIONS (2)
  - Procedural pain [Unknown]
  - Prostate cancer [Unknown]

NARRATIVE: CASE EVENT DATE: 2006
